FAERS Safety Report 5339516-2 (Version None)
Quarter: 2007Q2

REPORT INFORMATION
  Report Type: 
  Country: None (occurrence: None)
  Receive Date: 20070530
  Receipt Date: 20070515
  Transmission Date: 20071010
  Serious: Yes (Hospitalization)
  Sender: FDA-Public Use
  Company Number: PHHO2006US10378

PATIENT
  Age: 79 Year
  Sex: Male
  Weight: 81.1 kg

DRUGS (5)
  1. LOTREL [Suspect]
     Indication: HYPERTENSION
     Dosage: LEVEL 1
     Route: 048
     Dates: start: 20040616, end: 20040713
  2. LOTREL [Suspect]
     Dosage: LEVEL 2
     Route: 048
     Dates: start: 20040714
  3. CRESTOR [Concomitant]
     Indication: HYPERLIPIDAEMIA
     Dosage: UNK MG, QD
     Route: 048
     Dates: start: 20040201
  4. METOPROLOL SUCCINATE [Concomitant]
     Indication: CORONARY ARTERY DISEASE
     Dosage: 50 MG, QD
     Route: 048
     Dates: start: 19910101
  5. ASPIRIN [Concomitant]
     Indication: CORONARY ARTERY DISEASE
     Dosage: 325 MG, QD
     Route: 048
     Dates: start: 19910101

REACTIONS (4)
  - DIZZINESS [None]
  - NAUSEA [None]
  - SYNCOPE [None]
  - VOMITING [None]
